FAERS Safety Report 6305493-0 (Version None)
Quarter: 2009Q3

REPORT INFORMATION
  Report Type: 
  Country: None (occurrence: None)
  Receive Date: 20090811
  Receipt Date: 20090731
  Transmission Date: 20100115
  Serious: Yes (Death, Other)
  Sender: FDA-Public Use
  Company Number: JP-TYCO HEALTHCARE/MALLINCKRODT-T200901448

PATIENT
  Age: 77 Year
  Sex: Male

DRUGS (6)
  1. OPTIRAY 350 [Suspect]
     Indication: THERAPEUTIC EMBOLISATION
     Dosage: 120 ML, SINGLE
     Route: 013
     Dates: start: 20090703, end: 20090703
  2. OPTIRAY 350 [Suspect]
     Indication: ANGIOGRAM
  3. ETHYL ESTER OF IODINATED POPPY-SEED OIL FATTY ACID [Suspect]
     Indication: THERAPEUTIC EMBOLISATION
     Dosage: 6.7 ML, SINGLE
     Route: 013
     Dates: start: 20090703, end: 20090703
  4. EPIRUBICIN HYDROCHLORIDE [Suspect]
     Indication: THERAPEUTIC EMBOLISATION
     Dosage: 33 MG, SINGLE
     Route: 013
     Dates: start: 20090703, end: 20090703
  5. EPIRUBICIN HYDROCHLORIDE [Suspect]
     Indication: HEPATIC NEOPLASM MALIGNANT
  6. GELATIN MICROSPHERES [Concomitant]
     Indication: THERAPEUTIC EMBOLISATION
     Dosage: UNK
     Route: 013
     Dates: start: 20090703, end: 20090703

REACTIONS (3)
  - HEPATIC FAILURE [None]
  - RENAL FAILURE [None]
  - RESPIRATORY DISORDER [None]
